FAERS Safety Report 11713643 (Version 2)
Quarter: 2015Q4

REPORT INFORMATION
  Report Type: Spontaneous
  Country: BE (occurrence: BE)
  Receive Date: 20151109
  Receipt Date: 20151207
  Transmission Date: 20160304
  Serious: Yes (Hospitalization, Disabling, Other)
  Sender: FDA-Public Use
  Company Number: BE-AMGEN-BELSP2015105760

PATIENT
  Age: 53 Year
  Sex: Male
  Weight: 87 kg

DRUGS (7)
  1. JANUVIA [Concomitant]
     Active Substance: SITAGLIPTIN PHOSPHATE
     Dosage: UNK
     Route: 048
  2. DAFALGAN [Concomitant]
     Active Substance: ACETAMINOPHEN
     Dosage: UNK
     Route: 048
  3. NOBITEN                            /01339101/ [Concomitant]
     Active Substance: NEBIVOLOL
     Dosage: UNK
     Route: 048
  4. ENBREL [Suspect]
     Active Substance: ETANERCEPT
     Indication: PSORIATIC ARTHROPATHY
     Dosage: 50 MG, WEEKLY
     Route: 058
     Dates: start: 20140422, end: 20150415
  5. NOVOMIX [Concomitant]
     Active Substance: INSULIN ASPART
     Dosage: 2X/DAY (12 UNITS IN THE MORNING AND 8 UNITS IN THE EVENING)
     Route: 058
     Dates: start: 201405
  6. ESCITALOPRAM [Concomitant]
     Active Substance: ESCITALOPRAM OXALATE
     Dosage: UNK
     Route: 048
  7. FELDENE [Concomitant]
     Active Substance: PIROXICAM
     Dosage: UNK
     Route: 048

REACTIONS (5)
  - Spinal cord infection [Recovered/Resolved]
  - Quadriplegia [Not Recovered/Not Resolved]
  - Neurogenic bladder [Unknown]
  - Abscess neck [Recovered/Resolved]
  - Memory impairment [Unknown]

NARRATIVE: CASE EVENT DATE: 201504
